FAERS Safety Report 24955808 (Version 2)
Quarter: 2025Q1

REPORT INFORMATION
  Report Type: Spontaneous
  Country: GB (occurrence: None)
  Receive Date: 20250211
  Receipt Date: 20250220
  Transmission Date: 20250408
  Serious: Yes (Other)
  Sender: INCYTE
  Company Number: GB-002147023-NVSC2025GB020382

PATIENT
  Age: 86 Year

DRUGS (1)
  1. RUXOLITINIB [Suspect]
     Active Substance: RUXOLITINIB
     Indication: Myelofibrosis
     Route: 065

REACTIONS (4)
  - General physical health deterioration [Unknown]
  - Myelofibrosis [Unknown]
  - Malignant neoplasm progression [Unknown]
  - Drug ineffective [Unknown]
